FAERS Safety Report 5755869-5 (Version None)
Quarter: 2008Q2

REPORT INFORMATION
  Report Type: 
  Country: None (occurrence: None)
  Receive Date: 20080528
  Receipt Date: 20080513
  Transmission Date: 20081010
  Serious: Yes (Other)
  Sender: FDA-Public Use
  Company Number: TCI2008A02357

PATIENT
  Age: 52 Year
  Sex: Male

DRUGS (1)
  1. PREVPAC [Suspect]
     Indication: GASTRIC ULCER
     Dosage: PER ORAL
     Route: 048
     Dates: start: 20080427, end: 20080427

REACTIONS (3)
  - DRUG ERUPTION [None]
  - DYSGEUSIA [None]
  - HYPERAESTHESIA [None]
